FAERS Safety Report 24707424 (Version 1)
Quarter: 2024Q4

REPORT INFORMATION
  Report Type: Report from Study
  Country: CA (occurrence: CA)
  Receive Date: 20241206
  Receipt Date: 20241206
  Transmission Date: 20250115
  Serious: Yes (Other)
  Sender: CSL BEHRING
  Company Number: CA-BEH-2023160567

PATIENT
  Age: 69 Year
  Sex: Female
  Weight: 63.6 kg

DRUGS (1)
  1. HIZENTRA [Suspect]
     Active Substance: HUMAN IMMUNOGLOBULIN G
     Indication: Secondary immunodeficiency
     Dosage: 10 GRAM, QW
     Route: 065
     Dates: start: 20150519

REACTIONS (8)
  - Dupuytren^s contracture [Unknown]
  - Pneumonia [Unknown]
  - Pain [Unknown]
  - Arthralgia [Unknown]
  - Product preparation issue [Unknown]
  - Product dose omission issue [Unknown]
  - Illness [Unknown]
  - Asthenia [Unknown]

NARRATIVE: CASE EVENT DATE: 20240701
